FAERS Safety Report 9827613 (Version 1)
Quarter: 2014Q1

REPORT INFORMATION
  Report Type: Spontaneous
  Country: CH (occurrence: CH)
  Receive Date: 20140117
  Receipt Date: 20140117
  Transmission Date: 20141002
  Serious: Yes (Other)
  Sender: FDA-Public Use
  Company Number: CH-PFIZER INC-2014012935

PATIENT
  Age: 68 Year
  Sex: Male

DRUGS (9)
  1. CORDARONE [Suspect]
     Dosage: 1 DF, 2X/DAY
     Route: 048
  2. MARCOUMAR [Concomitant]
     Indication: ATRIAL FIBRILLATION
     Dosage: UNK
     Dates: start: 201111
  3. PLAVIX [Concomitant]
     Dosage: UNK
     Dates: start: 201111, end: 201203
  4. FRAGMIN [Concomitant]
     Dosage: UNK
     Dates: start: 201203, end: 201203
  5. KEPPRA [Concomitant]
     Indication: EPILEPSY
     Dosage: UNK
     Dates: start: 20120309
  6. MAGNESIUM [Concomitant]
     Dosage: UNK
     Dates: end: 201203
  7. SORTIS [Concomitant]
     Indication: DYSLIPIDAEMIA
     Dosage: UNK
     Dates: start: 201203
  8. PADMA 28 [Concomitant]
     Dosage: UNK
  9. GINKGO BILOBA EXTRACT [Concomitant]
     Dosage: UNK

REACTIONS (2)
  - Pachymeningitis [Not Recovered/Not Resolved]
  - CSF protein increased [Not Recovered/Not Resolved]
